FAERS Safety Report 8815250 (Version 1)
Quarter: 2012Q4

REPORT INFORMATION
  Report Type: 
  Country: PT (occurrence: PT)
  Receive Date: 20120928
  Receipt Date: 20120928
  Transmission Date: 20130627
  Serious: Yes (Other)
  Sender: FDA-Public Use
  Company Number: PT-JNJFOC-20120910003

PATIENT
  Age: 26 Year
  Sex: Female
  Weight: 55 kg

DRUGS (3)
  1. IMOGAS [Suspect]
     Indication: ABDOMINAL PAIN
     Route: 048
     Dates: start: 20120208, end: 20120208
  2. IMOGAS [Suspect]
     Indication: FLATULENCE
     Route: 048
     Dates: start: 20120208, end: 20120208
  3. IMOGAS [Suspect]
     Indication: ABDOMINAL DISTENSION
     Route: 048
     Dates: start: 20120208, end: 20120208

REACTIONS (3)
  - Abdominal pain [Recovered/Resolved]
  - Abdominal discomfort [Recovered/Resolved]
  - Diarrhoea [Recovered/Resolved]
